FAERS Safety Report 5859311-5 (Version None)
Quarter: 2008Q3

REPORT INFORMATION
  Report Type: 
  Country: None (occurrence: None)
  Receive Date: 20080825
  Receipt Date: 20080807
  Transmission Date: 20090109
  Serious: Yes (Death, Hospitalization)
  Sender: FDA-Public Use
  Company Number: 001#3#2008-00463

PATIENT
  Age: 78 Year
  Sex: Male

DRUGS (5)
  1. PROSTAVASIN-20?G (ALPROSTADIL (PAOD)) [Suspect]
     Indication: PERIPHERAL VASCULAR DISORDER
     Dosage: 20 MCG, INTRAVENOUS (NOT OTHERWISE SPECIFIED)
     Route: 042
     Dates: start: 20071112, end: 20071212
  2. HEPARIN-FRACTION, CALCIUM SALT (HEPARIN-FRACTION, CALCIUM SALT) [Concomitant]
  3. METOPROLOL SUCCINATE [Concomitant]
  4. CANDESARTAN CILEXETIL [Concomitant]
  5. ACETYLSALICYLIC ACID SRT [Concomitant]

REACTIONS (6)
  - ANOREXIA [None]
  - DYSPNOEA [None]
  - GAIT DISTURBANCE [None]
  - PULMONARY EMBOLISM [None]
  - RESPIRATORY DISORDER [None]
  - WEIGHT DECREASED [None]
